FAERS Safety Report 8997281 (Version 1)
Quarter: 2013Q1

REPORT INFORMATION
  Report Type: Spontaneous
  Country: US (occurrence: US)
  Receive Date: 20130104
  Receipt Date: 20130104
  Transmission Date: 20140127
  Serious: Yes (Other)
  Sender: FDA-Public Use
  Company Number: US-PFIZER INC-2013002930

PATIENT
  Age: 77 Year
  Sex: Female
  Weight: 72.56 kg

DRUGS (2)
  1. LYRICA [Suspect]
     Indication: FIBROMYALGIA
     Dosage: UNK, 1X/DAY
     Route: 048
     Dates: start: 2011, end: 2011
  2. EFEXOR XR [Concomitant]
     Dosage: 75 MG, UNK

REACTIONS (3)
  - Cataract [Unknown]
  - Vision blurred [Unknown]
  - Visual impairment [Unknown]
